FAERS Safety Report 4362646-9 (Version None)
Quarter: 2004Q2

REPORT INFORMATION
  Report Type: 
  Country: None (occurrence: None)
  Receive Date: 20040524
  Receipt Date: 20040506
  Transmission Date: 20050107
  Serious: Yes (Hospitalization)
  Sender: FDA-Public Use
  Company Number: PHEH2004US05063

PATIENT
  Age: 88 Year
  Sex: Female

DRUGS (5)
  1. EXELON [Suspect]
     Indication: DEMENTIA ALZHEIMER'S TYPE
     Dosage: 3 MG, TID
     Route: 048
     Dates: start: 20030401
  2. EXELON [Suspect]
     Dosage: 1.5 MG, TID
     Route: 048
     Dates: start: 20040210
  3. PLAVIX [Concomitant]
     Indication: CEREBROVASCULAR ACCIDENT
  4. NEXIUM                                  /USA/ [Concomitant]
     Indication: DYSPEPSIA
  5. CHLORDIAZEPOXIDE [Concomitant]
     Indication: ABDOMINAL PAIN

REACTIONS (4)
  - ASTHENIA [None]
  - DEHYDRATION [None]
  - DIARRHOEA [None]
  - IRRITABLE BOWEL SYNDROME [None]
